FAERS Safety Report 13307936 (Version 1)
Quarter: 2017Q1

REPORT INFORMATION
  Report Type: Report from Study
  Country: US (occurrence: US)
  Receive Date: 20170308
  Receipt Date: 20170308
  Transmission Date: 20170428
  Serious: No
  Sender: FDA-Public Use
  Company Number: US-AMGEN-USASL2016077310

PATIENT

DRUGS (1)
  1. SENSIPAR [Suspect]
     Active Substance: CINACALCET HYDROCHLORIDE
     Indication: PRODUCT USED FOR UNKNOWN INDICATION
     Route: 065

REACTIONS (4)
  - Abdominal pain [Not Recovered/Not Resolved]
  - Abdominal pain upper [Not Recovered/Not Resolved]
  - Adverse event [Not Recovered/Not Resolved]
  - Inappropriate schedule of drug administration [Not Recovered/Not Resolved]

NARRATIVE: CASE EVENT DATE: 20150101
